FAERS Safety Report 7865227-5 (Version None)
Quarter: 2011Q4

REPORT INFORMATION
  Report Type: 
  Country: None (occurrence: None)
  Receive Date: 20111028
  Receipt Date: 20101103
  Transmission Date: 20120403
  Serious: Yes (Other)
  Sender: FDA-Public Use
  Company Number: US-GLAXOSMITHKLINE-A0890562A

PATIENT
  Age: 74 Year
  Sex: Female

DRUGS (10)
  1. CALCIUM CARBONATE [Concomitant]
  2. NEXIUM [Concomitant]
  3. LEVOXYL [Concomitant]
  4. HYDROCHLOROTHIAZIDE [Concomitant]
  5. CENTRUM SILVER [Concomitant]
  6. ADVAIR DISKUS 100/50 [Suspect]
     Indication: EMPHYSEMA
     Dosage: 1PUFF TWICE PER DAY
     Route: 055
     Dates: start: 20030101
  7. METOPROLOL TARTRATE [Concomitant]
  8. SPIRIVA [Concomitant]
  9. AMLODIPINE [Concomitant]
  10. PREVACID [Concomitant]

REACTIONS (2)
  - CHOKING [None]
  - APHONIA [None]
